FAERS Safety Report 7125234-7 (Version None)
Quarter: 2010Q4

REPORT INFORMATION
  Report Type: 
  Country: None (occurrence: None)
  Receive Date: 20101129
  Receipt Date: 20101122
  Transmission Date: 20110411
  Serious: Yes (Life-Threatening, Hospitalization)
  Sender: FDA-Public Use
  Company Number: PHHY2010FR80323

PATIENT
  Sex: Female
  Weight: 32 kg

DRUGS (12)
  1. NEORAL [Suspect]
     Indication: FUNGAL SKIN INFECTION
     Dosage: 80 MG, BID
     Dates: start: 20101001, end: 20101011
  2. NEORAL [Suspect]
     Dosage: 5 MG/KG/DAY
  3. CORTANCYL [Concomitant]
     Indication: FUNGAL SKIN INFECTION
     Dosage: 40 MG, UNK
  4. CORTANCYL [Concomitant]
     Dosage: 30 MG,
  5. CACIT D3 [Concomitant]
     Dosage: 1 DF/DAY
  6. XYZAL [Concomitant]
  7. ATARAX [Concomitant]
     Dosage: 25 MG, UNK
  8. METHYLPREDNISOLONE [Concomitant]
     Dosage: 1 G/DAY
  9. ZOVIRAX [Concomitant]
     Dosage: UNK
  10. CLAFORAN [Concomitant]
  11. CLAMOXYL [Concomitant]
  12. SOLU-MEDROL [Concomitant]
     Dosage: 70 MG/DAY

REACTIONS (13)
  - ALANINE AMINOTRANSFERASE INCREASED [None]
  - ALTERED STATE OF CONSCIOUSNESS [None]
  - ASPARTATE AMINOTRANSFERASE INCREASED [None]
  - CELL DEATH [None]
  - DYSPNOEA [None]
  - EYE MOVEMENT DISORDER [None]
  - HYPERTENSIVE ENCEPHALOPATHY [None]
  - HYPOVENTILATION [None]
  - PYREXIA [None]
  - RESPIRATORY ARREST [None]
  - REVERSIBLE POSTERIOR LEUKOENCEPHALOPATHY SYNDROME [None]
  - TONIC CONVULSION [None]
  - TOXIC ENCEPHALOPATHY [None]
